FAERS Safety Report 7668989-5 (Version None)
Quarter: 2011Q3

REPORT INFORMATION
  Report Type: 
  Country: None (occurrence: None)
  Receive Date: 20110808
  Receipt Date: 20110803
  Transmission Date: 20111222
  Serious: Yes (Hospitalization)
  Sender: FDA-Public Use
  Company Number: US-GLAXOSMITHKLINE-Z0010021B

PATIENT
  Age: 59 Year
  Sex: Male
  Weight: 96.5 kg

DRUGS (6)
  1. POLYETHYLENE GLYCOL [Concomitant]
     Indication: CONSTIPATION PROPHYLAXIS
     Dosage: 17G PER DAY
     Route: 048
     Dates: start: 20110702
  2. FAMOTIDINE [Concomitant]
     Indication: DYSPEPSIA
     Dosage: 20MG PER DAY
     Route: 048
     Dates: start: 20110702, end: 20110705
  3. PACLITAXEL [Suspect]
     Indication: NON-SMALL CELL LUNG CANCER
     Dosage: 175MGM2 CYCLIC
     Route: 042
     Dates: start: 20100825
  4. ZANTAC [Concomitant]
     Indication: DYSPEPSIA
     Dosage: 150MG PER DAY
     Route: 048
     Dates: start: 20070101
  5. CELEBREX [Concomitant]
     Indication: NECK PAIN
     Dosage: 100MG PER DAY
     Route: 048
     Dates: start: 20110615
  6. PAZOPANIB [Suspect]
     Indication: NON-SMALL CELL LUNG CANCER
     Dosage: 400MG PER DAY
     Route: 048
     Dates: start: 20100826

REACTIONS (1)
  - SUBCUTANEOUS ABSCESS [None]
